FAERS Safety Report 8450218-6 (Version None)
Quarter: 2012Q2

REPORT INFORMATION
  Report Type: 
  Country: None (occurrence: None)
  Receive Date: 20120620
  Receipt Date: 20120619
  Transmission Date: 20120825
  Serious: Yes (Hospitalization)
  Sender: FDA-Public Use
  Company Number: 2012SP001666

PATIENT
  Age: 63 Year
  Sex: Female

DRUGS (8)
  1. NEURONTIN [Concomitant]
     Indication: ANXIETY
  2. ABILIFY [Concomitant]
     Indication: SCHIZOPHRENIA, PARANOID TYPE
  3. NAVANE /00099101/ [Concomitant]
     Dates: end: 20120101
  4. NEURONTIN [Concomitant]
     Indication: NEUROPATHY PERIPHERAL
  5. XANAX [Concomitant]
     Indication: ANXIETY
  6. ABILIFY [Concomitant]
     Dates: start: 20120609
  7. NAVANE /00099101/ [Concomitant]
     Indication: SCHIZOPHRENIA, PARANOID TYPE
     Dates: start: 20120601
  8. LATUDA [Suspect]
     Indication: SCHIZOPHRENIA, PARANOID TYPE
     Route: 048
     Dates: start: 20120611, end: 20120601

REACTIONS (10)
  - HALLUCINATION [None]
  - RESTLESSNESS [None]
  - ANXIETY [None]
  - TENSION HEADACHE [None]
  - TREMOR [None]
  - INSOMNIA [None]
  - NAUSEA [None]
  - STRESS [None]
  - PARANOIA [None]
  - WEIGHT DECREASED [None]
